FAERS Safety Report 21735046 (Version 1)
Quarter: 2022Q4

REPORT INFORMATION
  Report Type: Spontaneous
  Country: FR (occurrence: FR)
  Receive Date: 20221215
  Receipt Date: 20221215
  Transmission Date: 20230113
  Serious: Yes (Other)
  Sender: FDA-Public Use
  Company Number: None

PATIENT
  Age: 21 Year
  Sex: Male

DRUGS (1)
  1. ALECENSA [Suspect]
     Active Substance: ALECTINIB HYDROCHLORIDE
     Indication: Anaplastic large-cell lymphoma
     Dosage: 600 MG 02/JAN/2020 TO 02/19/2020 ?300 MG 2 FROM 03/02/2020, 450 MG IN THE MORNING AND 300 MG IN THE
     Route: 065
     Dates: start: 202001

REACTIONS (2)
  - Blood lactate dehydrogenase increased [Not Recovered/Not Resolved]
  - Spur cell anaemia [Unknown]

NARRATIVE: CASE EVENT DATE: 20220208
